FAERS Safety Report 8997030 (Version 1)
Quarter: 2013Q1

REPORT INFORMATION
  Report Type: Spontaneous
  Country: US (occurrence: US)
  Receive Date: 20130104
  Receipt Date: 20130104
  Transmission Date: 20140127
  Serious: No
  Sender: FDA-Public Use
  Company Number: US-TARO-2012P1054094

PATIENT
  Age: 56 Year
  Sex: Male

DRUGS (6)
  1. HYDROCORTISONE [Suspect]
     Dates: start: 2010, end: 20120813
  2. HYDROCORTISONE [Suspect]
     Dates: start: 20120814, end: 20120814
  3. HYDROCORTISONE [Suspect]
     Dates: start: 20120816
  4. PREDNISONE [Concomitant]
  5. NEXIUM [Concomitant]
  6. CRESTOR [Concomitant]

REACTIONS (4)
  - Headache [Not Recovered/Not Resolved]
  - Chest discomfort [Not Recovered/Not Resolved]
  - Inappropriate schedule of drug administration [Unknown]
  - Vasoconstriction [Not Recovered/Not Resolved]
